FAERS Safety Report 16133334 (Version 1)
Quarter: 2019Q1

REPORT INFORMATION
  Report Type: Spontaneous
  Country: US (occurrence: US)
  Receive Date: 20190329
  Receipt Date: 20190329
  Transmission Date: 20190418
  Serious: No
  Sender: FDA-Public Use
  Company Number: US-ASTRAZENECA-2019SE34534

PATIENT
  Sex: Female

DRUGS (7)
  1. FASENRA [Suspect]
     Active Substance: BENRALIZUMAB
     Indication: ASTHMA
     Dosage: 30 MG/ML, THREE DOSES EVERY FOUR WEEKS AND TWO DOSES EVERY EIGHT WEEKS
     Route: 058
  2. CORTICOSTEROID NOS [Concomitant]
     Active Substance: CORTICOSTEROID NOS
  3. FASENRA [Suspect]
     Active Substance: BENRALIZUMAB
     Indication: SINUSITIS
     Dosage: 30 MG/ML, THREE DOSES EVERY FOUR WEEKS AND TWO DOSES EVERY EIGHT WEEKS
     Route: 058
  4. FASENRA [Suspect]
     Active Substance: BENRALIZUMAB
     Indication: NASAL POLYPS
     Dosage: 30 MG/ML, EVERY FOUR WEEKS
     Route: 058
  5. FASENRA [Suspect]
     Active Substance: BENRALIZUMAB
     Indication: NASAL POLYPS
     Dosage: 30 MG/ML, THREE DOSES EVERY FOUR WEEKS AND TWO DOSES EVERY EIGHT WEEKS
     Route: 058
  6. FASENRA [Suspect]
     Active Substance: BENRALIZUMAB
     Indication: ASTHMA
     Dosage: 30 MG/ML, EVERY FOUR WEEKS
     Route: 058
  7. FASENRA [Suspect]
     Active Substance: BENRALIZUMAB
     Indication: SINUSITIS
     Dosage: 30 MG/ML, EVERY FOUR WEEKS
     Route: 058

REACTIONS (4)
  - Asthma [Unknown]
  - Drug ineffective [Unknown]
  - Product use in unapproved indication [Unknown]
  - Off label use [Unknown]
